FAERS Safety Report 4763371-2 (Version None)
Quarter: 2005Q3

REPORT INFORMATION
  Report Type: 
  Country: None (occurrence: None)
  Receive Date: 20050908
  Receipt Date: 20050901
  Transmission Date: 20060218
  Serious: Yes (Hospitalization)
  Sender: FDA-Public Use
  Company Number: 2005CG01466

PATIENT
  Age: 738 Month
  Sex: Male

DRUGS (1)
  1. CRESTOR [Suspect]
     Route: 048
     Dates: start: 20030101, end: 20050801

REACTIONS (2)
  - TENDON RUPTURE [None]
  - TENDONITIS [None]
